FAERS Safety Report 23137276 (Version 3)
Quarter: 2024Q2

REPORT INFORMATION
  Report Type: Spontaneous
  Country: US (occurrence: US)
  Receive Date: 20231102
  Receipt Date: 20240409
  Transmission Date: 20240716
  Serious: No
  Sender: FDA-Public Use
  Company Number: US-UNITED THERAPEUTICS-UNT-2023-023724

PATIENT
  Sex: Female

DRUGS (7)
  1. TYVASO [Suspect]
     Active Substance: TREPROSTINIL
     Indication: Pulmonary arterial hypertension
     Dosage: 18 ?G, QID
     Dates: end: 2023
  2. TYVASO [Suspect]
     Active Substance: TREPROSTINIL
     Dosage: 18 ?G, QID (RESTARTED)
     Dates: start: 202307
  3. TYVASO [Suspect]
     Active Substance: TREPROSTINIL
     Dosage: UNK
     Dates: start: 202207
  4. ACTEMRA [Concomitant]
     Active Substance: TOCILIZUMAB
     Indication: Rheumatoid arthritis
     Dosage: 162 MG, QWK
     Route: 058
     Dates: start: 202304
  5. OFEV [Concomitant]
     Active Substance: NINTEDANIB
     Indication: Idiopathic pulmonary fibrosis
     Dosage: 150 MG, BID
     Route: 048
     Dates: start: 202008
  6. OFEV [Concomitant]
     Active Substance: NINTEDANIB
     Dosage: 150 MG, BID
     Route: 048
     Dates: start: 20200819
  7. KEVZARA [Concomitant]
     Active Substance: SARILUMAB
     Indication: Rheumatoid lung
     Dosage: UNK, Q2WK (200MG/1.14)
     Route: 058

REACTIONS (2)
  - COVID-19 [Unknown]
  - Multiple allergies [Unknown]

NARRATIVE: CASE EVENT DATE: 20230101
